FAERS Safety Report 8273445-X (Version None)
Quarter: 2012Q2

REPORT INFORMATION
  Report Type: 
  Country: None (occurrence: None)
  Receive Date: 20120411
  Receipt Date: 20120322
  Transmission Date: 20120825
  Serious: No
  Sender: FDA-Public Use
  Company Number: US-ROXANE LABORATORIES, INC.-2012-RO-00472RO

PATIENT
  Sex: Female

DRUGS (1)
  1. CODEINE SULFATE [Suspect]
     Indication: PAIN
     Route: 048

REACTIONS (5)
  - GALLBLADDER DISORDER [None]
  - ABDOMINAL DISCOMFORT [None]
  - RESPIRATORY DISORDER [None]
  - DRUG INEFFECTIVE [None]
  - RENAL DISORDER [None]
